FAERS Safety Report 9701719 (Version 2)
Quarter: 2013Q4

REPORT INFORMATION
  Report Type: Spontaneous
  Country: US (occurrence: US)
  Receive Date: 20131119
  Receipt Date: 20131119
  Transmission Date: 20140711
  Serious: Yes (Other)
  Sender: FDA-Public Use
  Company Number: US-ORACLE-2011S1000117

PATIENT
  Age: 27 Year
  Sex: Male

DRUGS (13)
  1. KRYSTEXXA INJECTION [Suspect]
     Indication: GOUTY TOPHUS
     Route: 042
     Dates: start: 20110125, end: 20110125
  2. KRYSTEXXA INJECTION [Suspect]
     Indication: URATE NEPHROPATHY
     Route: 042
     Dates: start: 20110125, end: 20110125
  3. KRYSTEXXA INJECTION [Suspect]
     Indication: GOUTY TOPHUS
     Route: 042
     Dates: start: 20110210, end: 20110210
  4. KRYSTEXXA INJECTION [Suspect]
     Indication: URATE NEPHROPATHY
     Route: 042
     Dates: start: 20110210, end: 20110210
  5. KRYSTEXXA INJECTION [Suspect]
     Indication: GOUTY TOPHUS
     Route: 042
     Dates: start: 20110222, end: 20110222
  6. KRYSTEXXA INJECTION [Suspect]
     Indication: URATE NEPHROPATHY
     Route: 042
     Dates: start: 20110222, end: 20110222
  7. KRYSTEXXA INJECTION [Suspect]
     Indication: GOUTY TOPHUS
     Route: 042
     Dates: start: 20111213, end: 20111213
  8. KRYSTEXXA INJECTION [Suspect]
     Indication: URATE NEPHROPATHY
     Route: 042
     Dates: start: 20111213, end: 20111213
  9. KRYSTEXXA INJECTION [Suspect]
     Indication: GOUTY TOPHUS
     Route: 042
     Dates: start: 20111229, end: 20111229
  10. KRYSTEXXA INJECTION [Suspect]
     Indication: URATE NEPHROPATHY
     Route: 042
     Dates: start: 20111229, end: 20111229
  11. PREDNISONE [Concomitant]
     Indication: GOUT
  12. ULORIC [Concomitant]
     Indication: GOUT
     Route: 048
  13. MORPHINE [Concomitant]
     Indication: GOUT
     Route: 048
     Dates: start: 20111205

REACTIONS (2)
  - Infusion related reaction [Recovered/Resolved]
  - Therapeutic response decreased [Unknown]
